FAERS Safety Report 9964057 (Version 1)
Quarter: 2014Q1

REPORT INFORMATION
  Report Type: Spontaneous
  Country: FR (occurrence: FR)
  Receive Date: 20140305
  Receipt Date: 20140305
  Transmission Date: 20141002
  Serious: Yes (Hospitalization)
  Sender: FDA-Public Use
  Company Number: FR-GLAXOSMITHKLINE-B0972847A

PATIENT
  Age: 78 Year
  Sex: Male

DRUGS (10)
  1. ARIXTRA [Suspect]
     Indication: ATRIAL THROMBOSIS
     Dosage: 7.5MG PER DAY
     Route: 058
     Dates: start: 20131202, end: 20140124
  2. KARDEGIC [Suspect]
     Indication: ATRIAL THROMBOSIS
     Dosage: 160MG PER DAY
     Route: 048
     Dates: start: 20131202, end: 20140124
  3. CELECTOL [Concomitant]
     Route: 048
  4. INEXIUM [Concomitant]
     Route: 048
  5. HYTACAND [Concomitant]
  6. AUGMENTIN [Concomitant]
  7. FUROSEMIDE [Concomitant]
  8. CIFLOX [Concomitant]
     Route: 048
  9. CRESTOR [Concomitant]
     Route: 048
  10. FLUINDIONE [Concomitant]
     Dates: start: 201310, end: 201312

REACTIONS (4)
  - Muscle haemorrhage [Recovering/Resolving]
  - Anaemia [Recovering/Resolving]
  - Incorrect drug administration duration [Unknown]
  - Contraindication to medical treatment [Unknown]
